FAERS Safety Report 5485515-X (Version None)
Quarter: 2007Q4

REPORT INFORMATION
  Report Type: 
  Country: None (occurrence: None)
  Receive Date: 20071010
  Receipt Date: 20071010
  Transmission Date: 20080405
  Serious: Yes (Other)
  Sender: FDA-Public Use
  Company Number: None

PATIENT
  Sex: Female
  Weight: 59.4212 kg

DRUGS (8)
  1. REVLIMID [Suspect]
     Indication: MYELODYSPLASTIC SYNDROME
     Dosage: 5MG  28   PO
     Route: 048
  2. PROCRIT [Concomitant]
  3. VICODIN [Concomitant]
  4. LEVOTHROID [Concomitant]
  5. GEMFIBROZIL [Concomitant]
  6. LIPITOR [Concomitant]
  7. VERAPRAMIL [Concomitant]
  8. MAXZIDE [Concomitant]

REACTIONS (3)
  - ANAEMIA [None]
  - DIZZINESS [None]
  - FATIGUE [None]
